FAERS Safety Report 23789107 (Version 1)
Quarter: 2024Q2

REPORT INFORMATION
  Report Type: Spontaneous
  Country: US (occurrence: US)
  Receive Date: 20240426
  Receipt Date: 20240426
  Transmission Date: 20240716
  Serious: Yes (Other)
  Sender: FDA-Public Use
  Company Number: US-SPECGX-T202400966

PATIENT
  Age: 45 Year
  Sex: Female

DRUGS (3)
  1. DEXTROAMPHETAMINE SULFATE [Suspect]
     Active Substance: DEXTROAMPHETAMINE SULFATE
     Indication: Crohn^s disease
     Dosage: UNK
     Route: 065
  2. DEXTROAMPHET SACCHARAT, AMPHET ASPARTATE, DEXTROAMPHET SULFATE AND AMP [Suspect]
     Active Substance: AMPHETAMINE ASPARTATE\AMPHETAMINE ASPARTATE MONOHYDRATE\AMPHETAMINE SULFATE\DEXTROAMPHETAMINE SACCHA
     Indication: Crohn^s disease
     Dosage: UNK
     Route: 065
  3. PROGESTERONE [Concomitant]
     Active Substance: PROGESTERONE
     Indication: Hormone therapy
     Dosage: UNK
     Route: 065

REACTIONS (7)
  - Crohn^s disease [Recovering/Resolving]
  - Condition aggravated [Recovering/Resolving]
  - Intestinal resection [Unknown]
  - Ileostomy [Unknown]
  - Premature delivery [Unknown]
  - Drug effective for unapproved indication [Unknown]
  - Exposure during pregnancy [Unknown]
